APPROVED DRUG PRODUCT: DEOXYCHOLIC ACID
Active Ingredient: DEOXYCHOLIC ACID
Strength: 20MG/2ML (10MG/ML)
Dosage Form/Route: SOLUTION;SUBCUTANEOUS
Application: A212296 | Product #001 | TE Code: AP
Applicant: WILSHIRE PHARMACEUTICALS INC
Approved: Apr 2, 2021 | RLD: No | RS: No | Type: RX